FAERS Safety Report 7527311-5 (Version None)
Quarter: 2011Q2

REPORT INFORMATION
  Report Type: 
  Country: None (occurrence: None)
  Receive Date: 20110511
  Receipt Date: 20100624
  Transmission Date: 20111010
  Serious: Yes (Hospitalization)
  Sender: FDA-Public Use
  Company Number: 10-000958

PATIENT
  Age: 46 Year
  Sex: Female
  Weight: 55.1 kg

DRUGS (3)
  1. CLIMARA [Concomitant]
  2. FEMRING [Suspect]
     Indication: MENOPAUSE
     Dosage: VAGINAL
     Route: 067
     Dates: start: 20100618, end: 20100619
  3. PLAQUENIL [Concomitant]

REACTIONS (5)
  - APPLICATION SITE PAIN [None]
  - HOT FLUSH [None]
  - HEADACHE [None]
  - BACK PAIN [None]
  - INTESTINAL OBSTRUCTION [None]
